FAERS Safety Report 4351036-0 (Version None)
Quarter: 2004Q2

REPORT INFORMATION
  Report Type: 
  Country: None (occurrence: None)
  Receive Date: 20040427
  Receipt Date: 20040416
  Transmission Date: 20050107
  Serious: Yes (Hospitalization)
  Sender: FDA-Public Use
  Company Number: JP-JNJFOC-20040402353

PATIENT
  Age: 70 Year
  Sex: Male

DRUGS (14)
  1. ITRACONAZOLE [Suspect]
     Indication: DRUG USE FOR UNKNOWN INDICATION
     Dosage: 400 MG, 1 IN 1 DAY
  2. GLIMEPIRIDE [Suspect]
     Indication: DRUG USE FOR UNKNOWN INDICATION
     Dosage: 2 MG, 1 IN 1 DAY
  3. BUNAZOSIN HYDROCHLORIDE (BUNAZOSIN HYDROCHLORIDE) [Suspect]
     Indication: DRUG USE FOR UNKNOWN INDICATION
     Dosage: 3 MG, 1 IN 1 DAY
  4. CANDESARTAN CILEXETIL (CANDESARTAN CILEXETIL) [Suspect]
     Indication: DRUG USE FOR UNKNOWN INDICATION
     Dosage: 8 MG, 1 IN 1 DAY
     Dates: start: 20010410
  5. MEFRUSIDE (MEFRUSIDE) [Suspect]
     Indication: DRUG USE FOR UNKNOWN INDICATION
     Dosage: 200 MG, 1 IN 1 DAY
     Dates: start: 20030305
  6. VOGLIBOSE (VOGLIBOSE) [Concomitant]
  7. DIGOXIN [Concomitant]
  8. RANITIDINE HYDROCHLORIDE [Concomitant]
  9. NICORANDIL (NICORANDIL) [Concomitant]
  10. ATORVASTATIN CALCIUM [Concomitant]
  11. WARFARIN SODIUM [Concomitant]
  12. METFORMIN HCL [Concomitant]
  13. ISOSORBIDE DINITRATE [Concomitant]
  14. TICLOPIDINE (TICLOPIDINE) [Concomitant]

REACTIONS (7)
  - ATRIAL FIBRILLATION [None]
  - BLOOD GLUCOSE INCREASED [None]
  - BLOOD PRESSURE SYSTOLIC INCREASED [None]
  - BRADYCARDIA [None]
  - CHEST PAIN [None]
  - HEADACHE [None]
  - MALAISE [None]
